FAERS Safety Report 8766150 (Version 5)
Quarter: 2018Q3

REPORT INFORMATION
  Report Type: Spontaneous
  Country: GB (occurrence: GB)
  Receive Date: 20120904
  Receipt Date: 20180915
  Transmission Date: 20181010
  Serious: Yes (Other)
  Sender: FDA-Public Use
  Company Number: GB-009507513-2011SP028508

PATIENT
  Age: 21 Year
  Sex: Female

DRUGS (4)
  1. NEXPLANON [Suspect]
     Active Substance: ETONOGESTREL
     Dosage: 1 DF, UNK
     Route: 059
     Dates: start: 20110614, end: 20111122
  2. NEXPLANON [Suspect]
     Active Substance: ETONOGESTREL
     Indication: CONTRACEPTION
     Dosage: 1 DF, 1 IMPLANT LEFT ARM
     Route: 059
     Dates: start: 20110614, end: 20111122
  3. NEXPLANON [Suspect]
     Active Substance: ETONOGESTREL
     Dosage: 1 DF, 1 IMPLANT LEFT ARM
     Route: 059
     Dates: start: 20110126, end: 20110614
  4. NEXPLANON [Suspect]
     Active Substance: ETONOGESTREL
     Dosage: UNK

REACTIONS (9)
  - Unintended pregnancy [Recovered/Resolved]
  - Amenorrhoea [Unknown]
  - Pregnancy with implant contraceptive [Recovered/Resolved]
  - Complication of device removal [Recovered/Resolved]
  - Device breakage [Recovered/Resolved]
  - Implant site pain [Not Recovered/Not Resolved]
  - Abortion spontaneous complete [Recovered/Resolved]
  - Device kink [Recovered/Resolved]
  - Haemorrhage [Unknown]

NARRATIVE: CASE EVENT DATE: 2011
